FAERS Safety Report 8161548-X (Version None)
Quarter: 2012Q1

REPORT INFORMATION
  Report Type: 
  Country: None (occurrence: None)
  Receive Date: 20120224
  Receipt Date: 20120221
  Transmission Date: 20120608
  Serious: Yes (Hospitalization)
  Sender: FDA-Public Use
  Company Number: IN-SANOFI-AVENTIS-2012SA011298

PATIENT
  Age: 30 Year
  Sex: Male
  Weight: 38.5 kg

DRUGS (4)
  1. THEOPHYLLINE [Suspect]
     Route: 048
     Dates: start: 20120110, end: 20120113
  2. ISONIAZID [Suspect]
     Route: 065
     Dates: start: 20111219
  3. RIFAMPIN [Suspect]
     Indication: PULMONARY TUBERCULOSIS
     Route: 065
     Dates: start: 20111219
  4. LASILACTONE [Suspect]
     Route: 048
     Dates: start: 20120110, end: 20120113

REACTIONS (4)
  - DECREASED APPETITE [None]
  - ASTHENIA [None]
  - SEPTIC EMBOLUS [None]
  - COUGH [None]
